FAERS Safety Report 11218040 (Version 1)
Quarter: 2015Q2

REPORT INFORMATION
  Report Type: Spontaneous
  Country: JP (occurrence: JP)
  Receive Date: 20150625
  Receipt Date: 20150625
  Transmission Date: 20150821
  Serious: Yes (Other)
  Sender: FDA-Public Use
  Company Number: JP-WATSON-2015-12603

PATIENT
  Age: 72 Year
  Sex: Female

DRUGS (1)
  1. URSODEOXYCHOLIC ACID (UNKNOWN) [Suspect]
     Active Substance: URSODIOL
     Indication: BILE DUCT STONE
     Dosage: UNK
     Route: 065

REACTIONS (2)
  - Bile duct stone [Recovered/Resolved]
  - Condition aggravated [Recovered/Resolved]
